FAERS Safety Report 11307123 (Version 1)
Quarter: 2015Q3

REPORT INFORMATION
  Report Type: Spontaneous
  Country: US (occurrence: US)
  Receive Date: 20150723
  Receipt Date: 20150723
  Transmission Date: 20151125
  Serious: No
  Sender: FDA-Public Use
  Company Number: US-TEVA-580856ACC

PATIENT
  Sex: Female
  Weight: 61.29 kg

DRUGS (1)
  1. PARAGARD T 380A [Suspect]
     Active Substance: COPPER
     Indication: CONTRACEPTION
     Route: 015
     Dates: start: 201204, end: 201501

REACTIONS (5)
  - Abdominal pain [Recovered/Resolved]
  - Embedded device [Recovered/Resolved]
  - Endometriosis [Not Recovered/Not Resolved]
  - Premenstrual dysphoric disorder [Not Recovered/Not Resolved]
  - Menorrhagia [Recovered/Resolved]

NARRATIVE: CASE EVENT DATE: 2013
